FAERS Safety Report 25219811 (Version 1)
Quarter: 2025Q2

REPORT INFORMATION
  Report Type: Spontaneous
  Country: JP (occurrence: JP)
  Receive Date: 20250421
  Receipt Date: 20250421
  Transmission Date: 20250716
  Serious: Yes (Other)
  Sender: EMD SERONO INC
  Company Number: JP-Merck Healthcare KGaA-2025018740

PATIENT
  Age: 28 Year
  Sex: Female

DRUGS (2)
  1. OVIDREL [Suspect]
     Active Substance: CHORIOGONADOTROPIN ALFA
     Indication: Infertility female
  2. GONAL-F [Suspect]
     Active Substance: FOLLITROPIN
     Indication: Infertility female

REACTIONS (1)
  - Thyroid function test abnormal [Unknown]
